FAERS Safety Report 7416237-3 (Version None)
Quarter: 2011Q2

REPORT INFORMATION
  Report Type: 
  Country: None (occurrence: None)
  Receive Date: 20110414
  Receipt Date: 20110412
  Transmission Date: 20111010
  Serious: Yes (Death, Life-Threatening, Hospitalization, Other)
  Sender: FDA-Public Use
  Company Number: ES-TEVA-274306ISR

PATIENT
  Age: 33 Year
  Sex: Female

DRUGS (5)
  1. AMPHOTERICIN B [Concomitant]
  2. POSACONAZOLE [Interacting]
     Indication: ANTIFUNGAL PROPHYLAXIS
  3. DEXAMETHASONE [Concomitant]
     Indication: PROPHYLAXIS
  4. TRETINOIN [Interacting]
     Indication: ACUTE PROMYELOCYTIC LEUKAEMIA
     Dosage: 45 MG/M2;
     Route: 048
  5. FLUCONAZOLE [Suspect]
     Indication: ANTIFUNGAL PROPHYLAXIS

REACTIONS (5)
  - GASTROINTESTINAL TOXICITY [None]
  - HEPATOTOXICITY [None]
  - DRUG INTERACTION [None]
  - SEPTIC SHOCK [None]
  - MULTI-ORGAN FAILURE [None]
